FAERS Safety Report 4620132-2 (Version None)
Quarter: 2005Q1

REPORT INFORMATION
  Report Type: 
  Country: None (occurrence: None)
  Receive Date: 20050323
  Receipt Date: 20050323
  Transmission Date: 20050727
  Serious: Yes (Death, Other)
  Sender: FDA-Public Use
  Company Number: None

PATIENT
  Sex: Female
  Weight: 58.2 kg

DRUGS (3)
  1. CISPLATIN [Suspect]
     Dosage: 100 MG/M2 IV ON DAYS 1,22, AND 43, 80 MG/M2 IV ON DAYS 71, 99, + 127 AFTER RADIATION
     Route: 042
     Dates: start: 20041213
  2. RADIATION THERAPY [Suspect]
  3. FLUOROURACIL [Suspect]
     Dosage: 1,000 MG/M2 (CONTINOUS IV) OVER DAYS 71-74, 99-102 + 127-130
     Route: 042

REACTIONS (8)
  - ABNORMAL BEHAVIOUR [None]
  - ASPIRATION [None]
  - CHOKING [None]
  - GENERAL PHYSICAL HEALTH DETERIORATION [None]
  - HYPOXIA [None]
  - MENTAL STATUS CHANGES [None]
  - NEUTROPENIA [None]
  - PNEUMONIA ASPIRATION [None]
